FAERS Safety Report 8125855-9 (Version None)
Quarter: 2012Q1

REPORT INFORMATION
  Report Type: 
  Country: None (occurrence: None)
  Receive Date: 20120209
  Receipt Date: 20120127
  Transmission Date: 20120608
  Serious: Yes (Other)
  Sender: FDA-Public Use
  Company Number: CA-MYLANLABS-2012S1002395

PATIENT
  Age: 64 Year
  Sex: Female

DRUGS (2)
  1. FERROUS SULFATE TAB [Suspect]
     Route: 065
  2. WARFARIN SODIUM [Suspect]
     Route: 065

REACTIONS (1)
  - CALCIPHYLAXIS [None]
